FAERS Safety Report 8458248-5 (Version None)
Quarter: 2012Q2

REPORT INFORMATION
  Report Type: 
  Country: None (occurrence: None)
  Receive Date: 20120615
  Receipt Date: 20120530
  Transmission Date: 20120825
  Serious: Yes (Other)
  Sender: FDA-Public Use
  Company Number: FK201201465

PATIENT
  Age: 48 Year
  Sex: Male
  Weight: 195 kg

DRUGS (1)
  1. IRINOTECAN HYDROCHLORIDE [Suspect]
     Indication: COLON CANCER METASTATIC
     Dosage: 376 MG
     Dates: start: 20120502

REACTIONS (2)
  - MUSCLE SPASMS [None]
  - BLOOD MAGNESIUM DECREASED [None]
